FAERS Safety Report 21673911 (Version 1)
Quarter: 2022Q4

REPORT INFORMATION
  Report Type: Spontaneous
  Country: US (occurrence: None)
  Receive Date: 20221202
  Receipt Date: 20221202
  Transmission Date: 20230112
  Serious: No
  Sender: FDA-Public Use
  Company Number: 2022A366949

PATIENT
  Age: 30140 Day
  Sex: Female
  Weight: 77.6 kg

DRUGS (2)
  1. BUDESONIDE\FORMOTEROL\GLYCOPYRRONIUM [Suspect]
     Active Substance: BUDESONIDE\FORMOTEROL\GLYCOPYRRONIUM
     Indication: Chronic obstructive pulmonary disease
     Dosage: 160/9/4.8 MCG, VIA INHALATION, 2 PUFFS 2 TIMES A DAY
     Route: 055
     Dates: start: 202207
  2. BUDESONIDE\FORMOTEROL\GLYCOPYRRONIUM [Suspect]
     Active Substance: BUDESONIDE\FORMOTEROL\GLYCOPYRRONIUM
     Indication: Emphysema
     Dosage: 160/9/4.8 MCG, VIA INHALATION, 2 PUFFS 2 TIMES A DAY
     Route: 055
     Dates: start: 202207

REACTIONS (4)
  - Bronchitis [Not Recovered/Not Resolved]
  - Device malfunction [Not Recovered/Not Resolved]
  - Device use issue [Not Recovered/Not Resolved]
  - Off label use [Unknown]

NARRATIVE: CASE EVENT DATE: 20221101
